FAERS Safety Report 21580380 (Version 1)
Quarter: 2022Q4

REPORT INFORMATION
  Report Type: Report from Study
  Country: US (occurrence: US)
  Receive Date: 20221110
  Receipt Date: 20221110
  Transmission Date: 20230113
  Serious: Yes (Other)
  Sender: FDA-Public Use
  Company Number: US-BIOVITRUM-2022US12778

PATIENT
  Sex: Female

DRUGS (1)
  1. DOPTELET [Suspect]
     Active Substance: AVATROMBOPAG MALEATE
     Indication: Immune thrombocytopenia
     Dates: start: 20220926

REACTIONS (7)
  - Cerebral haemorrhage [Unknown]
  - Dyspnoea [Unknown]
  - Dizziness [Unknown]
  - Platelet count abnormal [Unknown]
  - Asthenia [Unknown]
  - Drug ineffective [Unknown]
  - Product use issue [Unknown]
